FAERS Safety Report 26083935 (Version 4)
Quarter: 2025Q4

REPORT INFORMATION
  Report Type: Report from Study
  Country: CA (occurrence: CA)
  Receive Date: 20251124
  Receipt Date: 20251217
  Transmission Date: 20260118
  Serious: Yes (Hospitalization)
  Sender: ABBVIE
  Company Number: CA-ABBVIE-6535635

PATIENT
  Age: 70 Year
  Sex: Male

DRUGS (22)
  1. VYALEV [Suspect]
     Active Substance: FOSCARBIDOPA\FOSLEVODOPA
     Indication: Product used for unknown indication
     Dosage: 0.7ML/HR (DAYTIME) AND 0.60 ML/HR (NIGHT TIME)
     Route: 058
     Dates: start: 20250625, end: 202512
  2. VYALEV [Suspect]
     Active Substance: FOSCARBIDOPA\FOSLEVODOPA
     Dosage: 0.60 ML/HR( DAY TIME) AND 0.50ML/HR ( NIGHT TIME)
     Route: 058
     Dates: start: 202512
  3. INSPRA [Concomitant]
     Active Substance: EPLERENONE
     Indication: Product used for unknown indication
     Dosage: INTEROMPRE INSPRA
  4. NITROGLYCERIN [Concomitant]
     Active Substance: NITROGLYCERIN
     Indication: Product used for unknown indication
  5. CARBIDOPA\LEVODOPA [Concomitant]
     Active Substance: CARBIDOPA\LEVODOPA
     Indication: Product used for unknown indication
     Dosage: AA LEVOCARB CR, 200-50MG
  6. CARBIDOPA\LEVODOPA [Concomitant]
     Active Substance: CARBIDOPA\LEVODOPA
     Indication: Product used for unknown indication
     Dosage: 100-25MG
  7. ATORVASTATIN [Concomitant]
     Active Substance: ATORVASTATIN
     Indication: Product used for unknown indication
  8. IVABRADINE [Concomitant]
     Active Substance: IVABRADINE
     Indication: Product used for unknown indication
  9. M PANTOPRAZOLE [Concomitant]
     Indication: Product used for unknown indication
  10. METOPROLOL [Concomitant]
     Active Substance: METOPROLOL
     Indication: Product used for unknown indication
  11. FUROSEMIDE [Concomitant]
     Active Substance: FUROSEMIDE
     Indication: Product used for unknown indication
     Dosage: PRO FUROSEMIDE
  12. PRO-ISMN [Concomitant]
     Indication: Product used for unknown indication
  13. OXAZEPAM [Concomitant]
     Active Substance: OXAZEPAM
     Indication: Product used for unknown indication
     Dosage: PRO OXAZEPAM
  14. SPIRONOLACTONE [Concomitant]
     Active Substance: SPIRONOLACTONE
     Indication: Product used for unknown indication
  15. VENLAFAXINE HYDROCHLORIDE [Concomitant]
     Active Substance: VENLAFAXINE HYDROCHLORIDE
     Indication: Product used for unknown indication
  16. CLOPIDOGREL [Concomitant]
     Active Substance: CLOPIDOGREL BISULFATE
     Indication: Product used for unknown indication
  17. CLOZARIL [Concomitant]
     Active Substance: CLOZAPINE
     Indication: Product used for unknown indication
  18. ENTRESTO [Concomitant]
     Active Substance: SACUBITRIL\VALSARTAN
     Indication: Product used for unknown indication
     Dosage: 24-26MG
  19. EZETIMIBE [Concomitant]
     Active Substance: EZETIMIBE
     Indication: Product used for unknown indication
  20. METFORMIN HYDROCHLORIDE [Concomitant]
     Active Substance: METFORMIN HYDROCHLORIDE
     Indication: Product used for unknown indication
  21. JARDIANCE [Concomitant]
     Active Substance: EMPAGLIFLOZIN
     Indication: Product used for unknown indication
  22. MELATONIN [Concomitant]
     Active Substance: MELATONIN
     Indication: Product used for unknown indication
     Dosage: 5MG X-FORT

REACTIONS (20)
  - Pneumonia aspiration [Unknown]
  - Infusion site haemorrhage [Unknown]
  - Insomnia [Not Recovered/Not Resolved]
  - Infusion site mass [Not Recovered/Not Resolved]
  - Hallucination [Recovered/Resolved]
  - Tremor [Not Recovered/Not Resolved]
  - Emotional disorder [Unknown]
  - Crying [Unknown]
  - Asthenia [Unknown]
  - Fatigue [Unknown]
  - Hypotension [Unknown]
  - Pain in extremity [Unknown]
  - Nausea [Unknown]
  - Cardiac failure [Unknown]
  - Illness [Unknown]
  - Feeding disorder [Unknown]
  - Discouragement [Unknown]
  - Malaise [Unknown]
  - Drug ineffective [Unknown]
  - Headache [Unknown]

NARRATIVE: CASE EVENT DATE: 20250101
